FAERS Safety Report 18601015 (Version 3)
Quarter: 2020Q4

REPORT INFORMATION
  Report Type: Report from Study
  Country: ES (occurrence: ES)
  Receive Date: 20201210
  Receipt Date: 20201223
  Transmission Date: 20210114
  Serious: Yes (Life-Threatening, Hospitalization)
  Sender: FDA-Public Use
  Company Number: ES-ALXN-A202017998

PATIENT
  Age: 43 Year
  Sex: Female
  Weight: 77 kg

DRUGS (2)
  1. RAVULIZUMAB. [Suspect]
     Active Substance: RAVULIZUMAB
     Dosage: 3300 MG, SINGLE
     Route: 042
     Dates: start: 20201126
  2. RAVULIZUMAB. [Suspect]
     Active Substance: RAVULIZUMAB
     Indication: NEUROMYELITIS OPTICA SPECTRUM DISORDER
     Dosage: 2700 MG, SINGLE
     Route: 042
     Dates: start: 20201113

REACTIONS (1)
  - Encephalitis meningococcal [Recovered/Resolved]

NARRATIVE: CASE EVENT DATE: 20201204
